FAERS Safety Report 7790410-7 (Version None)
Quarter: 2011Q3

REPORT INFORMATION
  Report Type: 
  Country: None (occurrence: None)
  Receive Date: 20110930
  Receipt Date: 20110921
  Transmission Date: 20111222
  Serious: Yes (Hospitalization)
  Sender: FDA-Public Use
  Company Number: CA-JNJFOC-20100802496

PATIENT
  Sex: Female
  Weight: 63.3 kg

DRUGS (12)
  1. PREDNISONE [Concomitant]
  2. SYNTHROID [Concomitant]
  3. REMICADE [Suspect]
     Indication: RHEUMATOID ARTHRITIS
     Route: 042
     Dates: start: 20110515
  4. HYDROCHLOROTHIAZIDE [Concomitant]
  5. REMICADE [Suspect]
     Route: 042
     Dates: start: 20100504
  6. ACEBUTOLOL [Concomitant]
  7. OGEN [Concomitant]
  8. CORTISONE ACETATE [Concomitant]
  9. REMICADE [Suspect]
     Route: 042
     Dates: start: 20081218
  10. DICLOFENAC [Concomitant]
  11. FOLIC ACID [Concomitant]
  12. METHOTREXATE [Concomitant]
     Route: 058

REACTIONS (5)
  - STAPHYLOCOCCAL INFECTION [None]
  - OSTEOMYELITIS [None]
  - ARTHRITIS BACTERIAL [None]
  - ABSCESS [None]
  - BACTERAEMIA [None]
